FAERS Safety Report 13844024 (Version 1)
Quarter: 2017Q3

REPORT INFORMATION
  Report Type: Spontaneous
  Country: IN (occurrence: IN)
  Receive Date: 20170808
  Receipt Date: 20170808
  Transmission Date: 20171127
  Serious: Yes (Life-Threatening)
  Sender: FDA-Public Use
  Company Number: IN-SUN PHARMACEUTICAL INDUSTRIES LTD-2017R1-147188

PATIENT
  Age: 6 Year
  Sex: Male

DRUGS (6)
  1. METOPROLOL. [Suspect]
     Active Substance: METOPROLOL
     Indication: MALIGNANT HYPERTENSION
     Route: 065
  2. NIFEDIPINE. [Suspect]
     Active Substance: NIFEDIPINE
     Indication: MALIGNANT HYPERTENSION
     Route: 065
  3. PRAZOSIN. [Suspect]
     Active Substance: PRAZOSIN
     Indication: MALIGNANT HYPERTENSION
     Route: 065
  4. CLONIDINE. [Suspect]
     Active Substance: CLONIDINE
     Indication: MALIGNANT HYPERTENSION
     Route: 065
  5. ENALAPRIL [Suspect]
     Active Substance: ENALAPRIL
     Indication: MALIGNANT HYPERTENSION
     Dosage: 0.2 MG/KG, DAILY
     Route: 048
  6. MINOXIDIL. [Suspect]
     Active Substance: MINOXIDIL
     Indication: MALIGNANT HYPERTENSION
     Route: 048

REACTIONS (1)
  - Drug ineffective [Unknown]
